FAERS Safety Report 16631072 (Version 1)
Quarter: 2019Q3

REPORT INFORMATION
  Report Type: Spontaneous
  Country: GB (occurrence: GB)
  Receive Date: 20190725
  Receipt Date: 20190725
  Transmission Date: 20191004
  Serious: Yes (Other)
  Sender: FDA-Public Use
  Company Number: GB-MYLANLABS-2019M1068716

PATIENT
  Age: 34 Year
  Sex: Male

DRUGS (2)
  1. CHAMPIX [Interacting]
     Active Substance: VARENICLINE TARTRATE
     Indication: SMOKING CESSATION THERAPY
     Dosage: 1 MG, 1X/DAY
     Route: 048
     Dates: end: 20080115
  2. CITALOPRAM [Suspect]
     Active Substance: CITALOPRAM HYDROBROMIDE
     Indication: PRODUCT USED FOR UNKNOWN INDICATION
     Dosage: UNK
     Route: 048

REACTIONS (4)
  - Drug interaction [Recovered/Resolved]
  - Aggression [Recovered/Resolved]
  - Hypomania [Recovered/Resolved]
  - Mania [Recovered/Resolved]
